FAERS Safety Report 5316488-8 (Version None)
Quarter: 2007Q2

REPORT INFORMATION
  Report Type: 
  Country: None (occurrence: None)
  Receive Date: 20070430
  Receipt Date: 20070413
  Transmission Date: 20071010
  Serious: Yes (Hospitalization)
  Sender: FDA-Public Use
  Company Number: 8022200

PATIENT
  Age: 39 Year
  Sex: Male
  Weight: 53 kg

DRUGS (6)
  1. KEPPRA [Suspect]
     Indication: EPILEPSY
     Dosage: 250 MG 1/D PO
     Route: 048
     Dates: start: 20070106, end: 20070101
  2. KEPPRA [Suspect]
     Indication: EPILEPSY
     Dosage: 500 MG /D PO
     Route: 048
     Dates: start: 20070101, end: 20070101
  3. KEPPRA [Suspect]
     Indication: EPILEPSY
     Dosage: 250 MG /D PO
     Route: 048
     Dates: start: 20070101, end: 20070125
  4. EPILIM [Concomitant]
  5. VIGABATRIN [Concomitant]
  6. PHENYTOIN [Concomitant]

REACTIONS (8)
  - AGGRESSION [None]
  - AGITATION [None]
  - DYSKINESIA [None]
  - FLUSHING [None]
  - HEADACHE [None]
  - INSOMNIA [None]
  - PSYCHOMOTOR HYPERACTIVITY [None]
  - TREMOR [None]
